FAERS Safety Report 23149381 (Version 1)
Quarter: 2023Q4

REPORT INFORMATION
  Report Type: Spontaneous
  Country: US (occurrence: None)
  Receive Date: 20231104
  Receipt Date: 20231104
  Transmission Date: 20240110
  Serious: Yes (Hospitalization)
  Sender: FDA-Public Use
  Company Number: None

PATIENT
  Sex: Male

DRUGS (1)
  1. INVEGA SUSTENNA [Suspect]
     Active Substance: PALIPERIDONE PALMITATE
     Indication: Schizophrenia
     Dosage: OTHER STRENGTH : 234MG/1.5ML;?OTHER QUANTITY : 234MG/1.5ML;?
     Route: 030
     Dates: start: 20231004

REACTIONS (2)
  - Hospitalisation [None]
  - Therapy interrupted [None]
